FAERS Safety Report 5485221-1 (Version None)
Quarter: 2007Q4

REPORT INFORMATION
  Report Type: 
  Country: None (occurrence: None)
  Receive Date: 20071015
  Receipt Date: 20070928
  Transmission Date: 20080405
  Serious: Yes (Hospitalization, Other)
  Sender: FDA-Public Use
  Company Number: US-ELI_LILLY_AND_COMPANY-US200710000077

PATIENT
  Age: 70 Year
  Sex: Male

DRUGS (9)
  1. CYMBALTA [Suspect]
     Indication: NEURALGIA
     Dosage: 40 MG, DAILY (1/D)
     Dates: start: 20070101
  2. CYMBALTA [Suspect]
     Dosage: 60 MG, DAILY (1/D)
     Dates: start: 20070101
  3. CYMBALTA [Suspect]
     Dosage: 40 MG, DAILY (1/D)
     Dates: start: 20070101
  4. CYMBALTA [Suspect]
     Dosage: 60 MG, DAILY (1/D)
     Dates: start: 20070101
  5. OXYCODONE HCL [Concomitant]
     Indication: PAIN
     Dosage: UNK, AS NEEDED
  6. DIURETICS [Concomitant]
  7. PROTONIX [Concomitant]
  8. FLOMAX [Concomitant]
     Indication: PROSTATIC DISORDER
  9. NEURONTIN [Concomitant]
     Indication: NEUROPATHY

REACTIONS (8)
  - EXTRASYSTOLES [None]
  - HEART RATE DECREASED [None]
  - HEART RATE INCREASED [None]
  - HEART RATE IRREGULAR [None]
  - LOSS OF CONSCIOUSNESS [None]
  - ORTHOSTATIC HYPOTENSION [None]
  - SUPRAVENTRICULAR EXTRASYSTOLES [None]
  - THINKING ABNORMAL [None]
